FAERS Safety Report 17419053 (Version 3)
Quarter: 2020Q2

REPORT INFORMATION
  Report Type: Spontaneous
  Country: US (occurrence: US)
  Receive Date: 20200214
  Receipt Date: 20200521
  Transmission Date: 20200713
  Serious: No
  Sender: FDA-Public Use
  Company Number: US-ASTRAZENECA-2020SE20817

PATIENT
  Age: 183 Day
  Sex: Male
  Weight: 5.9 kg

DRUGS (2)
  1. SYNAGIS [Suspect]
     Active Substance: PALIVIZUMAB
     Dosage: 87.0MG UNKNOWN
     Route: 030
     Dates: start: 20191230, end: 20200310
  2. SYNAGIS [Suspect]
     Active Substance: PALIVIZUMAB
     Route: 030

REACTIONS (3)
  - Bronchiolitis [Unknown]
  - Malaise [Unknown]
  - Ear infection [Unknown]

NARRATIVE: CASE EVENT DATE: 20191230
